FAERS Safety Report 6829056-3 (Version None)
Quarter: 2010Q3

REPORT INFORMATION
  Report Type: 
  Country: None (occurrence: None)
  Receive Date: 20100709
  Receipt Date: 20070227
  Transmission Date: 20110219
  Serious: No
  Sender: FDA-Public Use
  Company Number: US-PFIZER INC-2007016509

PATIENT
  Sex: Male
  Weight: 83.91 kg

DRUGS (5)
  1. CHANTIX [Suspect]
     Indication: SMOKING CESSATION THERAPY
     Dates: start: 20070201
  2. WARFARIN [Suspect]
     Indication: THROMBOSIS PROPHYLAXIS
  3. ATENOLOL [Concomitant]
     Indication: HEART RATE INCREASED
  4. CLARITIN [Concomitant]
  5. LEVOXYL [Concomitant]
     Indication: BASEDOW'S DISEASE

REACTIONS (1)
  - BLOOD DISORDER [None]
